FAERS Safety Report 9291512 (Version 6)
Quarter: 2013Q3

REPORT INFORMATION
  Report Type: Report from Study
  Country: JP (occurrence: JP)
  Receive Date: 20130515
  Receipt Date: 20130911
  Transmission Date: 20140515
  Serious: Yes (Other)
  Sender: FDA-Public Use
  Company Number: JP-OTSUKA-JP-2013-11416

PATIENT
  Age: 85 Year
  Sex: Male
  Weight: 55 kg

DRUGS (19)
  1. SAMSCA [Suspect]
     Indication: FLUID RETENTION
     Dosage: 15 MG MILLIGRAM(S), QAM
     Route: 048
     Dates: start: 20130418, end: 20130419
  2. SAMSCA [Suspect]
     Dosage: 7.5 MG MILLIGRAM(S), QAM
     Route: 048
     Dates: start: 20130420, end: 20130430
  3. SAMSCA [Suspect]
     Dosage: 15 MG MILLIGRAM(S), QAM
     Route: 048
     Dates: start: 20130501
  4. LASIX [Suspect]
     Indication: CARDIAC FAILURE
     Dosage: 120 MG MILLIGRAM(S), DAILY DOSE
     Route: 048
     Dates: end: 20130427
  5. LASIX [Suspect]
     Dosage: 80 MG MILLIGRAM(S), DAILY DOSE
     Route: 048
     Dates: start: 20130428, end: 20130430
  6. LASIX [Suspect]
     Dosage: 60 MG MILLIGRAM(S), DAILY DOSE
     Route: 048
     Dates: start: 20130501, end: 20130502
  7. LASIX [Suspect]
     Dosage: 40 MG MILLIGRAM(S), DAILY DOSE
     Route: 048
     Dates: start: 20130503
  8. BLOPRESS [Concomitant]
     Indication: CARDIAC FAILURE
     Dosage: 2 MG MILLIGRAM(S), DAILY DOSE
     Route: 048
     Dates: end: 20130427
  9. PANALDINE [Concomitant]
     Dosage: 200 MG MILLIGRAM(S), DAILY DOSE
     Route: 048
     Dates: end: 20130504
  10. BAYASPIRIN [Concomitant]
     Dosage: 200 MG MILLIGRAM(S), DAILY DOSE
     Route: 048
  11. ALLOZYM [Concomitant]
     Dosage: 200 MG MILLIGRAM(S), DAILY DOSE
     Route: 048
  12. MECOBALAMIN [Concomitant]
     Dosage: 0.5 MG MILLIGRAM(S), DAILY DOSE
     Route: 048
  13. NESP [Concomitant]
     Dosage: 120 MCG, ONCE EVERY TWO WEEKS
     Route: 058
  14. KREMEZIN [Concomitant]
     Dosage: 6 G GRAM(S), DAILY DOSE
     Route: 048
  15. FLIVAS [Concomitant]
     Dosage: 75 MG MILLIGRAM(S), DAILY DOSE
     Route: 048
  16. BROTIZOLAM [Concomitant]
     Dosage: 0.25 MG MILLIGRAM(S), DAILY DOSE
     Route: 048
  17. AVOLVE [Concomitant]
     Dosage: 0.5 MG MILLIGRAM(S), DAILY DOSE
     Route: 048
  18. TEPRENONE [Concomitant]
     Dosage: 150 MG MILLIGRAM(S), DAILY DOSE
     Route: 048
  19. ALOSENN [Concomitant]
     Dosage: 0.5 G GRAM(S), DAILY DOSE
     Route: 048

REACTIONS (7)
  - Gastrointestinal haemorrhage [Unknown]
  - Renal impairment [Recovering/Resolving]
  - Hyperkalaemia [Recovered/Resolved]
  - Hyperammonaemia [Recovered/Resolved]
  - Hypernatraemia [Recovered/Resolved]
  - Asthenia [Unknown]
  - Decreased appetite [Unknown]
